FAERS Safety Report 8550507-0 (Version None)
Quarter: 2012Q3

REPORT INFORMATION
  Report Type: 
  Country: None (occurrence: None)
  Receive Date: 20120730
  Receipt Date: 20120718
  Transmission Date: 20120928
  Serious: Yes (Other)
  Sender: FDA-Public Use
  Company Number: US-BRISTOL-MYERS SQUIBB COMPANY-16784126

PATIENT
  Age: 70 Year
  Sex: Male
  Weight: 80 kg

DRUGS (1)
  1. COUMADIN [Suspect]
     Indication: THROMBOSIS
     Dosage: STARTED ON 1982 OR 1983.

REACTIONS (7)
  - MYOCARDIAL INFARCTION [None]
  - SINUSITIS [None]
  - MALAISE [None]
  - VERTIGO [None]
  - VISION BLURRED [None]
  - TOOTH INFECTION [None]
  - HEADACHE [None]
